FAERS Safety Report 24705301 (Version 2)
Quarter: 2024Q4

REPORT INFORMATION
  Report Type: Spontaneous
  Country: FR (occurrence: FR)
  Receive Date: 20241206
  Receipt Date: 20241231
  Transmission Date: 20250114
  Serious: Yes (Other)
  Sender: REGENERON
  Company Number: None

PATIENT
  Age: 74 Year
  Sex: Male

DRUGS (3)
  1. EYLEA [Suspect]
     Active Substance: AFLIBERCEPT
     Indication: Age-related macular degeneration
     Dosage: 1 INJECTION, SOLUTION FOR INJECTION IN PRE-FILLED SYRINGE, 40 MG/ML
     Route: 031
     Dates: start: 20241031, end: 20241031
  2. ATORVASTATIN CALCIUM TRIHYDRATE [Concomitant]
     Active Substance: ATORVASTATIN CALCIUM TRIHYDRATE
     Indication: Product used for unknown indication
  3. ATORVASTATIN [Concomitant]
     Active Substance: ATORVASTATIN
     Indication: Product used for unknown indication
     Dosage: UNK

REACTIONS (3)
  - Headache [Recovered/Resolved]
  - Pyrexia [Recovered/Resolved]
  - Erythema [Recovered/Resolved]

NARRATIVE: CASE EVENT DATE: 20241031
